FAERS Safety Report 6763486-3 (Version None)
Quarter: 2010Q2

REPORT INFORMATION
  Report Type: 
  Country: None (occurrence: None)
  Receive Date: 20100610
  Receipt Date: 20100510
  Transmission Date: 20101027
  Serious: No
  Sender: FDA-Public Use
  Company Number: US-BAYER-201015426BCC

PATIENT
  Sex: Female

DRUGS (5)
  1. ALEVE (CAPLET) [Suspect]
     Indication: MYALGIA
     Route: 048
     Dates: start: 20090101, end: 20090101
  2. ALEVE [Suspect]
     Indication: MYALGIA
     Route: 048
  3. ASPIRIN [Suspect]
     Indication: DRUG USE FOR UNKNOWN INDICATION
     Route: 048
  4. PROGESTERONE [Concomitant]
     Route: 065
  5. ESTROGEN [Concomitant]
     Route: 065

REACTIONS (2)
  - DYSGEUSIA [None]
  - DYSPEPSIA [None]
